FAERS Safety Report 22760357 (Version 2)
Quarter: 2024Q2

REPORT INFORMATION
  Report Type: Report from Study
  Country: US (occurrence: US)
  Receive Date: 20230728
  Receipt Date: 20240411
  Transmission Date: 20240716
  Serious: Yes (Death)
  Sender: FDA-Public Use
  Company Number: US-MORPHOSYS US-2023-MOR004506-US

PATIENT

DRUGS (2)
  1. MONJUVI [Suspect]
     Active Substance: TAFASITAMAB-CXIX
     Indication: Diffuse large B-cell lymphoma
     Dosage: 790 MILLIGRAM VIA PIGGY BACK METHOD EVERY 7 DAYS (DAYS 1, 8, 15, 22) EVERY 28 DAYS
     Route: 042
     Dates: start: 20230711
  2. MONJUVI [Suspect]
     Active Substance: TAFASITAMAB-CXIX
     Indication: Follicular lymphoma

REACTIONS (1)
  - Asthenia [Fatal]
